FAERS Safety Report 14519416 (Version 1)
Quarter: 2018Q1

REPORT INFORMATION
  Report Type: Spontaneous
  Country: PL (occurrence: PL)
  Receive Date: 20180212
  Receipt Date: 20180212
  Transmission Date: 20180509
  Serious: Yes (Death)
  Sender: FDA-Public Use
  Company Number: PL-BAYER-2018-013054

PATIENT
  Age: 65 Year
  Sex: Female
  Weight: 80 kg

DRUGS (1)
  1. ULTRAVIST [Suspect]
     Active Substance: IOPROMIDE
     Dosage: 90 ML, UNK
     Route: 042

REACTIONS (3)
  - Nausea [Fatal]
  - Cardiac arrest [Fatal]
  - Cough [Fatal]

NARRATIVE: CASE EVENT DATE: 20171106
